FAERS Safety Report 6245950-9 (Version None)
Quarter: 2009Q2

REPORT INFORMATION
  Report Type: 
  Country: None (occurrence: None)
  Receive Date: 20090626
  Receipt Date: 20080818
  Transmission Date: 20091009
  Serious: No
  Sender: FDA-Public Use
  Company Number: A0743317A

PATIENT
  Sex: Female

DRUGS (4)
  1. IMITREX [Suspect]
     Indication: MIGRAINE
  2. SEROQUEL [Concomitant]
  3. TEGRETOL [Concomitant]
  4. VALIUM [Concomitant]

REACTIONS (1)
  - DRUG INEFFECTIVE [None]
